FAERS Safety Report 6831141-7 (Version None)
Quarter: 2010Q3

REPORT INFORMATION
  Report Type: 
  Country: None (occurrence: None)
  Receive Date: 20100712
  Receipt Date: 20100628
  Transmission Date: 20110219
  Serious: Yes (Hospitalization)
  Sender: FDA-Public Use
  Company Number: GB-AMGEN-QUU421728

PATIENT
  Sex: Female
  Weight: 84.1 kg

DRUGS (4)
  1. ETANERCEPT [Suspect]
     Indication: JUVENILE ARTHRITIS
     Route: 058
     Dates: start: 20080714
  2. FOLIC ACID [Concomitant]
     Route: 048
     Dates: start: 20071001
  3. PRILOSEC [Concomitant]
     Route: 048
     Dates: start: 20070901
  4. METHOTREXATE [Concomitant]
     Route: 058
     Dates: start: 20071001

REACTIONS (2)
  - CONDITION AGGRAVATED [None]
  - JUVENILE ARTHRITIS [None]
